FAERS Safety Report 16756199 (Version 2)
Quarter: 2019Q3

REPORT INFORMATION
  Report Type: Spontaneous
  Country: JP (occurrence: JP)
  Receive Date: 20190829
  Receipt Date: 20190906
  Transmission Date: 20191005
  Serious: Yes (Hospitalization)
  Sender: FDA-Public Use
  Company Number: JP-ASTRAZENECA-2019SF21869

PATIENT
  Age: 71 Year
  Sex: Male

DRUGS (2)
  1. SYMBICORT [Suspect]
     Active Substance: BUDESONIDE\FORMOTEROL FUMARATE DIHYDRATE
     Dosage: UNKNOWN UNKNOWN
     Route: 055
  2. EKLIRA [Concomitant]
     Active Substance: ACLIDINIUM BROMIDE

REACTIONS (3)
  - Subarachnoid haemorrhage [Unknown]
  - Product taste abnormal [Unknown]
  - Device issue [Unknown]
